FAERS Safety Report 10583621 (Version 1)
Quarter: 2014Q4

REPORT INFORMATION
  Report Type: Spontaneous
  Country: US (occurrence: None)
  Receive Date: 20141112
  Receipt Date: 20141112
  Transmission Date: 20150529
  Serious: Yes (Other)
  Sender: FDA-Public Use
  Company Number: 201410216

PATIENT
  Age: 58 Year
  Sex: Male

DRUGS (2)
  1. TESTIM [Suspect]
     Active Substance: TESTOSTERONE
     Indication: BLOOD TESTOSTERONE DECREASED
     Dosage: TRANSDERMAL.
  2. TESTIM [Suspect]
     Active Substance: TESTOSTERONE
     Indication: HYPOGONADISM
     Dosage: TRANSDERMAL.

REACTIONS (7)
  - Pain [None]
  - Myocardial infarction [None]
  - Economic problem [None]
  - Mental disorder [None]
  - Anxiety [None]
  - Emotional disorder [None]
  - Impaired work ability [None]

NARRATIVE: CASE EVENT DATE: 20121108
